FAERS Safety Report 4494408-6 (Version None)
Quarter: 2004Q4

REPORT INFORMATION
  Report Type: 
  Country: None (occurrence: None)
  Receive Date: 20041104
  Receipt Date: 20041104
  Transmission Date: 20050328
  Serious: Yes (Hospitalization)
  Sender: FDA-Public Use
  Company Number: None

PATIENT
  Sex: Female
  Weight: 84.369 kg

DRUGS (6)
  1. VIOXX [Suspect]
     Indication: BACK PAIN
     Dosage: ONCE A DAY, SOMEDAY TWICE
     Dates: start: 20030201
  2. NORVASC [Concomitant]
  3. HYZAAR [Concomitant]
  4. AMBIEN [Concomitant]
  5. BENADRYL [Concomitant]
  6. PRILOSEC [Concomitant]

REACTIONS (1)
  - TRANSIENT ISCHAEMIC ATTACK [None]
